FAERS Safety Report 15376503 (Version 7)
Quarter: 2019Q1

REPORT INFORMATION
  Report Type: Report from Study
  Country: US (occurrence: US)
  Receive Date: 20180912
  Receipt Date: 20190102
  Transmission Date: 20190417
  Serious: Yes (Hospitalization, Other)
  Sender: FDA-Public Use
  Company Number: US-JAZZ-2018-US-013037

PATIENT
  Age: 30 Year
  Sex: Female

DRUGS (3)
  1. XYREM [Suspect]
     Active Substance: SODIUM OXYBATE
     Indication: NARCOLEPSY
     Dosage: 2.25 G, BID
     Route: 048
     Dates: start: 20180821, end: 201808
  2. XYREM [Suspect]
     Active Substance: SODIUM OXYBATE
     Indication: CATAPLEXY
     Dosage: UNKNOWN DOSE
     Route: 048
     Dates: start: 20180916
  3. ATENOLOL. [Suspect]
     Active Substance: ATENOLOL
     Indication: HYPERTENSION
     Dosage: UNK

REACTIONS (13)
  - Anxiety [Recovered/Resolved]
  - Dry mouth [Not Recovered/Not Resolved]
  - Heart rate increased [Unknown]
  - Chest pain [Recovered/Resolved]
  - Agitation [Not Recovered/Not Resolved]
  - Blood iron decreased [Unknown]
  - Blood pressure increased [Not Recovered/Not Resolved]
  - Mood altered [Recovered/Resolved]
  - Electrolyte imbalance [Recovering/Resolving]
  - Vitamin B12 decreased [Unknown]
  - Withdrawal syndrome [Unknown]
  - Condition aggravated [Unknown]
  - Heart rate decreased [Recovered/Resolved]

NARRATIVE: CASE EVENT DATE: 2018
